FAERS Safety Report 9847247 (Version 2)
Quarter: 2014Q1

REPORT INFORMATION
  Report Type: Spontaneous
  Country: US (occurrence: US)
  Receive Date: 20140127
  Receipt Date: 20140127
  Transmission Date: 20141002
  Serious: Yes (Hospitalization)
  Sender: FDA-Public Use
  Company Number: US-DYAX CORP.-2012DX000118

PATIENT
  Age: 41 Year
  Sex: Female

DRUGS (18)
  1. KALBITOR [Suspect]
     Indication: HEREDITARY ANGIOEDEMA
     Dates: start: 20111016, end: 20111016
  2. KALBITOR [Suspect]
     Dates: start: 20111016, end: 20111016
  3. VICODIN ES [Concomitant]
     Indication: PAIN
     Route: 048
  4. VICODIN [Concomitant]
     Indication: PAIN
     Route: 048
  5. ALLEGRA [Concomitant]
     Indication: HYPERSENSITIVITY
     Route: 048
  6. ZANTAC [Concomitant]
     Indication: HYPERSENSITIVITY
     Route: 048
  7. WELLBUTRIN [Concomitant]
     Indication: ANXIETY
     Route: 048
  8. WELLBUTRIN [Concomitant]
     Indication: DEPRESSION
     Route: 048
  9. CINRYZE [Concomitant]
     Indication: PRODUCT USED FOR UNKNOWN INDICATION
     Route: 042
  10. ZYRTEC [Concomitant]
     Indication: HYPERSENSITIVITY
     Route: 048
  11. TOPAMAX [Concomitant]
     Indication: MIGRAINE
     Route: 048
  12. RELPAX [Concomitant]
     Indication: MIGRAINE
     Route: 048
  13. DANAZOL [Concomitant]
     Indication: PRODUCT USED FOR UNKNOWN INDICATION
     Route: 048
  14. LIDOCAINE [Concomitant]
     Indication: PAIN
     Route: 061
  15. ZOFRAN [Concomitant]
     Indication: NAUSEA
     Route: 048
  16. PREVACID [Concomitant]
     Indication: HYPERSENSITIVITY
     Route: 048
  17. SINGULAIR [Concomitant]
     Indication: ASTHMA
     Route: 048
  18. PHENTERMINE [Concomitant]
     Indication: OBESITY
     Route: 048

REACTIONS (1)
  - Therapeutic response decreased [Recovered/Resolved]
